FAERS Safety Report 12914270 (Version 1)
Quarter: 2016Q4

REPORT INFORMATION
  Report Type: Spontaneous
  Country: CO (occurrence: CO)
  Receive Date: 20161106
  Receipt Date: 20161106
  Transmission Date: 20170207
  Serious: Yes (Other)
  Sender: FDA-Public Use
  Company Number: CO-ASTRAZENECA-2016SF16315

PATIENT
  Sex: Female

DRUGS (3)
  1. ZOLENDRONATO [Suspect]
     Active Substance: ZOLEDRONIC ACID
     Dates: start: 201402
  2. GOSERELINA [Suspect]
     Active Substance: GOSERELIN
     Indication: BREAST CANCER FEMALE
     Route: 058
     Dates: start: 201402
  3. TAMOXIFEN [Suspect]
     Active Substance: TAMOXIFEN
     Indication: BREAST CANCER FEMALE
     Route: 048
     Dates: start: 201402

REACTIONS (5)
  - Disease progression [Unknown]
  - Hypercholesterolaemia [Unknown]
  - Pulmonary mass [Unknown]
  - Anaemia [Unknown]
  - Metastases to bone [Unknown]

NARRATIVE: CASE EVENT DATE: 201505
